FAERS Safety Report 4901300-9 (Version None)
Quarter: 2006Q1

REPORT INFORMATION
  Report Type: 
  Country: None (occurrence: None)
  Receive Date: 20060202
  Receipt Date: 20060124
  Transmission Date: 20060701
  Serious: Yes (Death)
  Sender: FDA-Public Use
  Company Number: 2005173468

PATIENT
  Age: 40 Year
  Sex: Male
  Weight: 65 kg

DRUGS (23)
  1. GEODON [Suspect]
     Indication: AGITATION
     Dosage: 20 MG (20 MG, ONE TIME DOSE), INTRAMUSCULAR
     Route: 030
     Dates: start: 20040805, end: 20040805
  2. PROTONIX [Concomitant]
  3. ELECTROLYTE SOLUTIONS (ELECTROLYTE SOLUTIONS) [Concomitant]
  4. MINERALS NOS (MINERALS NOS) [Concomitant]
  5. CLONIDINE [Concomitant]
  6. CLONIDINE [Concomitant]
  7. HALOPERIDOL [Concomitant]
  8. ALL OTHER THERAPEUTIC PRODUCTS (ALL OTHER THERAPEUTIC PRODUCTS) [Concomitant]
  9. THIAMINE (THIAMINE) [Concomitant]
  10. MULTIVITAMIN [Concomitant]
  11. LACTULOSE [Concomitant]
  12. HEPARIN [Concomitant]
  13. MULTIVITAMIN [Concomitant]
  14. FOLIC ACID [Concomitant]
  15. THAIMINE (THIAMINE) [Concomitant]
  16. INSULIN, REGULAR (INSULIN) [Concomitant]
  17. POTASSIUM PHOSPHATE (POTASSIUM PHOSPHATE) [Concomitant]
  18. CALCIUM CHLORIDE (CALCIUM CHLORIDE ANHYDROUS) [Concomitant]
  19. DUONEB (IPRATROPIUM BROMIDE, SALBUTAMOL SULFATE) [Concomitant]
  20. LACTULOSE [Concomitant]
  21. LORAZEPAM [Concomitant]
  22. PEPCID [Concomitant]
  23. ALL OTHER THERAPEUTIC PRODUCTS (ALL OTHER THERAPEUTIC PRODUCTS) [Concomitant]

REACTIONS (11)
  - ALCOHOLIC LIVER DISEASE [None]
  - CARDIAC DEATH [None]
  - CARDIO-RESPIRATORY ARREST [None]
  - CHOLELITHIASIS [None]
  - GASTRITIS [None]
  - MITRAL VALVE PROLAPSE [None]
  - PNEUMONIA ASPIRATION [None]
  - RENAL DISORDER [None]
  - RESPIRATORY FAILURE [None]
  - SPLEEN CONGESTION [None]
  - VENTRICULAR HYPERTROPHY [None]
